FAERS Safety Report 9692783 (Version 1)
Quarter: 2013Q4

REPORT INFORMATION
  Report Type: Spontaneous
  Country: US (occurrence: None)
  Receive Date: 20131115
  Receipt Date: 20131115
  Transmission Date: 20140711
  Serious: Yes (Life-Threatening)
  Sender: FDA-Public Use
  Company Number: None

PATIENT
  Age: 49 Year
  Sex: Female
  Weight: 113 kg

DRUGS (3)
  1. HURRICANE SPRAY [Suspect]
     Indication: SEDATION
     Dosage: 1 APPLICATION TRANSDERMAL
     Route: 062
     Dates: start: 20130917, end: 20130917
  2. FENTANYL [Concomitant]
  3. VERSED [Concomitant]

REACTIONS (3)
  - Oxygen saturation decreased [None]
  - Cyanosis [None]
  - Skin discolouration [None]
